FAERS Safety Report 15096584 (Version 1)
Quarter: 2018Q3

REPORT INFORMATION
  Report Type: Spontaneous
  Country: DE (occurrence: DE)
  Receive Date: 20180702
  Receipt Date: 20180702
  Transmission Date: 20181010
  Serious: Yes (Death)
  Sender: FDA-Public Use
  Company Number: PHHY2018DE032888

PATIENT
  Sex: Male
  Weight: 80 kg

DRUGS (1)
  1. EVEROLIMUS. [Suspect]
     Active Substance: EVEROLIMUS
     Indication: TRANSPLANT
     Dosage: 2 DF, UNK
     Route: 048
     Dates: start: 20110124

REACTIONS (2)
  - Respiratory failure [Fatal]
  - Product use in unapproved indication [Unknown]
